FAERS Safety Report 9381431 (Version 1)
Quarter: 2013Q3

REPORT INFORMATION
  Report Type: Other
  Country: ES (occurrence: ES)
  Receive Date: 20130703
  Receipt Date: 20130703
  Transmission Date: 20140515
  Serious: Yes (Death, Other)
  Sender: FDA-Public Use
  Company Number: ES-MPIJNJ-2013-05061

PATIENT
  Sex: 0

DRUGS (15)
  1. VELCADE [Suspect]
     Indication: PLASMA CELL MYELOMA
     Dosage: UNK
     Route: 042
     Dates: start: 20101015, end: 20110317
  2. VINCRISTINE [Suspect]
     Indication: PLASMA CELL MYELOMA
     Dosage: UNK
     Route: 042
     Dates: start: 20110402
  3. CYCLOPHOSPHAMIDE [Suspect]
     Indication: PLASMA CELL MYELOMA
     Dosage: 50 MG, UNK
     Route: 042
     Dates: start: 20120403
  4. REVLIMID [Suspect]
     Indication: PLASMA CELL MYELOMA
     Dosage: 50 MG, UNK
     Route: 048
     Dates: start: 20110929
  5. ADRIAMYCIN [Suspect]
     Indication: PLASMA CELL MYELOMA
     Dosage: UNK
     Route: 042
     Dates: start: 20110402
  6. RANITIDINE [Concomitant]
     Dosage: 300 G, UNK
     Route: 048
  7. PREDNISONE [Concomitant]
     Route: 048
  8. DEXAMETHASONE [Concomitant]
     Dosage: 20 MG, UNK
     Route: 042
  9. HIDROXIL B12 B6 B1 [Concomitant]
     Route: 048
  10. LANTUS [Concomitant]
     Route: 058
  11. LYRICA [Concomitant]
     Dosage: 75 MG, UNK
     Route: 048
  12. MASTICAL [Concomitant]
     Dosage: 500 MG, UNK
     Route: 048
  13. NOCTAMID [Concomitant]
     Dosage: 1 MG, UNK
     Route: 048
  14. VIREAD                             /01490001/ [Concomitant]
     Indication: HEPATITIS B
     Dosage: 245 MG, UNK
     Route: 048
  15. ZEFFIX [Concomitant]
     Dosage: 25 MG, UNK
     Route: 048

REACTIONS (2)
  - Progressive multifocal leukoencephalopathy [Fatal]
  - Hepatitis C virus test positive [Unknown]
